FAERS Safety Report 4652867-X (Version None)
Quarter: 2005Q2

REPORT INFORMATION
  Report Type: 
  Country: None (occurrence: None)
  Receive Date: 20050502
  Receipt Date: 20050418
  Transmission Date: 20051028
  Serious: Yes (Hospitalization)
  Sender: FDA-Public Use
  Company Number: 2005SE02284

PATIENT
  Age: 38 Year
  Sex: Female
  Weight: 62.7 kg

DRUGS (1)
  1. SEROQUEL [Suspect]
     Indication: SCHIZOPHRENIA
     Dosage: 500 MG DAILY, PO
     Route: 048
     Dates: start: 20041122

REACTIONS (3)
  - CONDITION AGGRAVATED [None]
  - SCHIZOPHRENIA [None]
  - TREATMENT NONCOMPLIANCE [None]
